FAERS Safety Report 24732594 (Version 3)
Quarter: 2024Q4

REPORT INFORMATION
  Report Type: Spontaneous
  Country: DE (occurrence: DE)
  Receive Date: 20241213
  Receipt Date: 20241227
  Transmission Date: 20250115
  Serious: Yes (Other)
  Sender: EXELIXIS
  Company Number: DE-IPSEN Group, Research and Development-2024-21978

PATIENT
  Age: 81 Year
  Sex: Male

DRUGS (7)
  1. CABOMETYX [Suspect]
     Active Substance: CABOZANTINIB S-MALATE
     Indication: Renal cell carcinoma
     Dosage: 60 MG
     Route: 065
     Dates: start: 20240510, end: 20240920
  2. APIXABAN [Concomitant]
     Active Substance: APIXABAN
     Dosage: UNK
  3. LEVOTHYROXINE [Concomitant]
     Active Substance: LEVOTHYROXINE
     Dosage: UNK
  4. METOPROLOL [Concomitant]
     Active Substance: METOPROLOL
     Dosage: UNK
  5. TORSEMIDE [Concomitant]
     Active Substance: TORSEMIDE
     Dosage: UNK
  6. ATORVASTATIN [Concomitant]
     Active Substance: ATORVASTATIN
     Dosage: UNK
  7. PAMIDRONIC ACID [Concomitant]
     Active Substance: PAMIDRONIC ACID
     Dosage: UNK
     Dates: start: 20240711, end: 20240808

REACTIONS (15)
  - Respiratory failure [Unknown]
  - Cardiac failure [Unknown]
  - Cardiogenic shock [Unknown]
  - Septic shock [Unknown]
  - Delirium [Unknown]
  - Aspiration [Unknown]
  - Hypothyroidism [Unknown]
  - Dysphagia [Not Recovered/Not Resolved]
  - Dysarthria [Unknown]
  - Pleural effusion [Unknown]
  - Intensive care unit acquired weakness [Unknown]
  - Intensive care unit acquired weakness [Unknown]
  - Asthenia [Unknown]
  - Mouth ulceration [Unknown]
  - General physical health deterioration [Unknown]

NARRATIVE: CASE EVENT DATE: 20240815
